FAERS Safety Report 10034663 (Version 1)
Quarter: 2014Q1

REPORT INFORMATION
  Report Type: Spontaneous
  Country: US (occurrence: None)
  Receive Date: 20140306
  Receipt Date: 20140306
  Transmission Date: 20141002
  Serious: Yes (Other)
  Sender: FDA-Public Use
  Company Number: 163-21880-13032482

PATIENT
  Age: 76 Year
  Sex: Male

DRUGS (1)
  1. REVLIMID (LENALIDOMIDE) (15 MILLIGRAM, CAPSULES) [Suspect]
     Indication: AMYLOIDOSIS
     Dosage: 15 MG, 21 IN 21 D, PO?10/09/2012 - PERMANENTLY DISCONTINUED
     Route: 048
     Dates: start: 20121009

REACTIONS (2)
  - Amyloidosis [None]
  - Disease progression [None]
